FAERS Safety Report 25620676 (Version 1)
Quarter: 2025Q3

REPORT INFORMATION
  Report Type: Spontaneous
  Country: US (occurrence: US)
  Receive Date: 20250730
  Receipt Date: 20250730
  Transmission Date: 20251021
  Serious: Yes (Other)
  Sender: CHATTEM
  Company Number: US-OPELLA-2025OHG022766

PATIENT
  Sex: Female

DRUGS (2)
  1. GOLD BOND ORIGINAL STRENGTH [Suspect]
     Active Substance: MENTHOL
     Indication: Product used for unknown indication
     Route: 065
  2. VENTOLIN HFA [Concomitant]
     Active Substance: ALBUTEROL SULFATE
     Indication: Wheezing
     Dosage: INHALE 2 PUFFS EVERY 6 HOURS IF NEEDED FOR WHEEZING
     Route: 055
     Dates: start: 20230606, end: 20240715

REACTIONS (1)
  - Sarcomatoid mesothelioma [Unknown]

NARRATIVE: CASE EVENT DATE: 20240730
